FAERS Safety Report 12815487 (Version 2)
Quarter: 2016Q4

REPORT INFORMATION
  Report Type: Report from Study
  Country: CZ (occurrence: CZ)
  Receive Date: 20161005
  Receipt Date: 20161024
  Transmission Date: 20170207
  Serious: Yes (Death, Hospitalization, Other)
  Sender: FDA-Public Use
  Company Number: PHHY2016CZ136597

PATIENT
  Age: 62 Year
  Sex: Female

DRUGS (2)
  1. SANDOSTATIN LAR DEPOT [Suspect]
     Active Substance: OCTREOTIDE ACETATE
     Dosage: 30 OT, UNK
     Route: 065
     Dates: start: 20140704, end: 20150415
  2. SANDOSTATIN LAR DEPOT [Suspect]
     Active Substance: OCTREOTIDE ACETATE
     Indication: NEUROENDOCRINE TUMOUR
     Dosage: 30 OT, UNK
     Route: 065
     Dates: start: 20120822, end: 20140603

REACTIONS (5)
  - General physical health deterioration [Unknown]
  - Ascites [Unknown]
  - Death [Fatal]
  - Malignant neoplasm progression [Unknown]
  - Lymphoedema [Unknown]

NARRATIVE: CASE EVENT DATE: 20140603
